FAERS Safety Report 9302677 (Version 2)
Quarter: 2013Q2

REPORT INFORMATION
  Report Type: Spontaneous
  Country: US (occurrence: None)
  Receive Date: 20130517
  Receipt Date: 20130605
  Transmission Date: 20140414
  Serious: Yes (Other)
  Sender: FDA-Public Use
  Company Number: PIN-2013-00022

PATIENT
  Sex: 0

DRUGS (2)
  1. PORFIMER SODIUM [Suspect]
     Indication: ORAL NEOPLASM
     Route: 042
  2. PORFIMER SODIUM [Suspect]
     Indication: LARYNGEAL NEOPLASM
     Route: 042

REACTIONS (2)
  - Aspiration [None]
  - Off label use [None]
